FAERS Safety Report 4639065-0 (Version None)
Quarter: 2005Q2

REPORT INFORMATION
  Report Type: 
  Country: None (occurrence: None)
  Receive Date: 20050419
  Receipt Date: 20050408
  Transmission Date: 20051028
  Serious: Yes (Hospitalization)
  Sender: FDA-Public Use
  Company Number: US-JNJFOC-20050403553

PATIENT
  Age: 87 Year
  Sex: Female

DRUGS (6)
  1. EXTRA STRENGTH TYLENOL [Suspect]
     Route: 049
  2. EXTRA STRENGTH TYLENOL [Suspect]
     Indication: SCIATICA
     Route: 049
  3. ADVIL [Concomitant]
  4. ATENOLOL [Concomitant]
     Route: 049
  5. DIURETIC [Concomitant]
     Route: 049
  6. MONOPRIL [Concomitant]
     Dosage: 10 MG, QD-BID, PO
     Route: 049

REACTIONS (3)
  - BURNING SENSATION [None]
  - DYSPNOEA [None]
  - ERYTHEMA [None]
